FAERS Safety Report 24402125 (Version 1)
Quarter: 2024Q4

REPORT INFORMATION
  Report Type: Spontaneous
  Country: GB (occurrence: GB)
  Receive Date: 20241007
  Receipt Date: 20241007
  Transmission Date: 20250114
  Serious: Yes (Hospitalization)
  Sender: TEVA
  Company Number: GB-AUROBINDO-AUR-APL-2024-046047

PATIENT
  Age: 31 Year
  Sex: Male

DRUGS (4)
  1. RISPERIDONE [Suspect]
     Active Substance: RISPERIDONE
     Indication: Mental disorder
     Route: 048
     Dates: start: 2013, end: 2013
  2. RISPERIDONE [Suspect]
     Active Substance: RISPERIDONE
     Indication: Mental disorder
     Dosage: 2MG/DAY OR 3MG/DAY (REPORTED AS HIGH DOSE)
     Route: 048
     Dates: start: 201305, end: 2013
  3. RISPERIDONE [Suspect]
     Active Substance: RISPERIDONE
     Indication: Mental disorder
     Route: 048
     Dates: start: 202309, end: 202310
  4. RISPERIDONE [Suspect]
     Active Substance: RISPERIDONE
     Indication: Mental disorder
     Route: 048
     Dates: start: 202310, end: 202406

REACTIONS (6)
  - Illness [Recovering/Resolving]
  - Trismus [Recovered/Resolved]
  - Blood prolactin increased [Recovered/Resolved]
  - Confusional state [Recovering/Resolving]
  - Speech disorder [Recovering/Resolving]
  - Agitation [Recovering/Resolving]

NARRATIVE: CASE EVENT DATE: 20130501
